FAERS Safety Report 4709667-1 (Version None)
Quarter: 2005Q3

REPORT INFORMATION
  Report Type: 
  Country: None (occurrence: None)
  Receive Date: 20050707
  Receipt Date: 20050616
  Transmission Date: 20060218
  Serious: Yes (Hospitalization)
  Sender: FDA-Public Use
  Company Number: USA0506100683

PATIENT
  Age: 84 Year
  Sex: Female

DRUGS (2)
  1. FORTEO [Suspect]
     Indication: OSTEOPOROSIS
     Dates: start: 20030601
  2. LORTAB (LORATADINE) [Concomitant]

REACTIONS (8)
  - ABDOMINAL PAIN [None]
  - GROIN PAIN [None]
  - HAEMORRHAGE [None]
  - HERNIA REPAIR [None]
  - PHARMACEUTICAL PRODUCT COMPLAINT [None]
  - ROAD TRAFFIC ACCIDENT [None]
  - SURGICAL PROCEDURE REPEATED [None]
  - WHIPLASH INJURY [None]
